FAERS Safety Report 20723304 (Version 1)
Quarter: 2022Q2

REPORT INFORMATION
  Report Type: Spontaneous
  Country: US (occurrence: US)
  Receive Date: 20220419
  Receipt Date: 20220419
  Transmission Date: 20220721
  Serious: No
  Sender: FDA-Public Use
  Company Number: US-GLAXOSMITHKLINE-US2022065095

PATIENT
  Sex: Female

DRUGS (1)
  1. ADVAIR DISKUS [Suspect]
     Active Substance: FLUTICASONE PROPIONATE\SALMETEROL XINAFOATE
     Indication: Asthma
     Dosage: 1 PUFF(S), BID, 500/50 PWD 60INHALE 1 PUFF EVERY 12 HOURS
     Route: 055
     Dates: start: 200201, end: 202202

REACTIONS (4)
  - Dysphonia [Unknown]
  - Dry throat [Unknown]
  - Secretion discharge [Unknown]
  - Labelled drug-disease interaction medication error [Unknown]
